FAERS Safety Report 4677780-3 (Version None)
Quarter: 2005Q2

REPORT INFORMATION
  Report Type: 
  Country: None (occurrence: None)
  Receive Date: 20050531
  Receipt Date: 20050520
  Transmission Date: 20051028
  Serious: Yes (Hospitalization, Other)
  Sender: FDA-Public Use
  Company Number: US-JNJFOC-20050307555

PATIENT
  Sex: Female

DRUGS (7)
  1. DURAGESIC-100 [Suspect]
     Route: 062
     Dates: start: 20050201
  2. DURAGESIC-100 [Suspect]
     Route: 062
     Dates: start: 20050201
  3. XANAX [Concomitant]
     Route: 049
  4. WELLBUTRIN [Concomitant]
     Route: 049
  5. PROZAC [Concomitant]
     Route: 049
  6. PRAVACHOL [Concomitant]
     Route: 049
  7. PREVACID [Concomitant]
     Route: 049

REACTIONS (5)
  - DEPRESSION [None]
  - DRUG WITHDRAWAL SYNDROME [None]
  - FALL [None]
  - GAIT DISTURBANCE [None]
  - SUICIDAL IDEATION [None]
